FAERS Safety Report 11806260 (Version 2)
Quarter: 2016Q3

REPORT INFORMATION
  Report Type: Report from Study
  Country: CA (occurrence: CA)
  Receive Date: 20151207
  Receipt Date: 20160816
  Transmission Date: 20161109
  Serious: Yes (Other)
  Sender: FDA-Public Use
  Company Number: CA-ROCHE-1512303

PATIENT
  Age: 78 Year
  Sex: Male
  Weight: 75.5 kg

DRUGS (7)
  1. ACTEMRA [Suspect]
     Active Substance: TOCILIZUMAB
     Indication: TEMPORAL ARTERITIS
     Route: 042
     Dates: start: 20141028
  2. LIPITOR [Concomitant]
     Active Substance: ATORVASTATIN CALCIUM
  3. ASA [Concomitant]
     Active Substance: ASPIRIN
     Route: 065
  4. ACTEMRA [Suspect]
     Active Substance: TOCILIZUMAB
     Route: 042
     Dates: start: 20150326, end: 20160603
  5. IMURAN [Concomitant]
     Active Substance: AZATHIOPRINE
     Route: 065
  6. PREDNISONE. [Concomitant]
     Active Substance: PREDNISONE
     Route: 065
  7. ACTONEL [Concomitant]
     Active Substance: RISEDRONATE SODIUM
     Route: 065

REACTIONS (15)
  - Cataract [Unknown]
  - Middle ear effusion [Recovered/Resolved]
  - Lipoma [Recovering/Resolving]
  - Infusion related reaction [Unknown]
  - Oxygen saturation decreased [Unknown]
  - C-reactive protein increased [Unknown]
  - Off label use [Unknown]
  - Rash [Recovered/Resolved]
  - Temporal arteritis [Unknown]
  - Rash [Unknown]
  - Hepatic enzyme increased [Unknown]
  - Skin warm [Unknown]
  - Dry skin [Unknown]
  - Weight decreased [Unknown]
  - Musculoskeletal discomfort [Recovering/Resolving]

NARRATIVE: CASE EVENT DATE: 20141223
